FAERS Safety Report 5984525-3 (Version None)
Quarter: 2008Q4

REPORT INFORMATION
  Report Type: 
  Country: None (occurrence: None)
  Receive Date: 20081208
  Receipt Date: 20080822
  Transmission Date: 20090506
  Serious: No
  Sender: FDA-Public Use
  Company Number: US-AMGEN-KDL303331

PATIENT
  Sex: Female

DRUGS (4)
  1. ENBREL [Suspect]
     Indication: PSORIASIS
     Route: 058
     Dates: start: 20080121
  2. ENBREL [Suspect]
     Indication: RHEUMATOID ARTHRITIS
  3. ARAVA [Concomitant]
     Route: 048
  4. PLAQUENIL [Concomitant]
     Dates: start: 20080301, end: 20080601

REACTIONS (4)
  - DIABETES MELLITUS [None]
  - PSORIASIS [None]
  - RHEUMATOID ARTHRITIS [None]
  - UPPER RESPIRATORY TRACT INFECTION [None]
